FAERS Safety Report 14551604 (Version 1)
Quarter: 2018Q1

REPORT INFORMATION
  Report Type: Spontaneous
  Country: US (occurrence: US)
  Receive Date: 20180220
  Receipt Date: 20180220
  Transmission Date: 20180509
  Serious: Yes (Hospitalization)
  Sender: FDA-Public Use
  Company Number: US-ROCHE-2071332

PATIENT
  Sex: Male

DRUGS (9)
  1. COMBIVENT [Concomitant]
     Active Substance: ALBUTEROL SULFATE\IPRATROPIUM BROMIDE
     Dosage: ONGOING
     Route: 065
     Dates: start: 20120808
  2. ALECENSA [Suspect]
     Active Substance: ALECTINIB HYDROCHLORIDE
     Indication: LUNG NEOPLASM MALIGNANT
     Dosage: ONGOING
     Route: 048
     Dates: start: 20161231
  3. FOLIC ACID. [Concomitant]
     Active Substance: FOLIC ACID
     Dosage: ONGOING
     Route: 065
     Dates: start: 20120808
  4. OMEPRAZOLE. [Concomitant]
     Active Substance: OMEPRAZOLE
     Dosage: ONGOING
     Route: 065
     Dates: start: 20180207
  5. VITAMIN B12 [Concomitant]
     Active Substance: CYANOCOBALAMIN
     Dosage: ONGOING
     Route: 065
     Dates: start: 20171205
  6. OXYCODONE [Concomitant]
     Active Substance: OXYCODONE
     Dosage: ONGOING
     Route: 065
     Dates: start: 20120808
  7. PROCHLORPERAZINE. [Concomitant]
     Active Substance: PROCHLORPERAZINE
     Dosage: ONGOING
     Route: 065
     Dates: start: 20120808
  8. LYRICA [Concomitant]
     Active Substance: PREGABALIN
     Dosage: ONGOING
     Route: 065
     Dates: start: 20171113
  9. LISINOPRIL. [Concomitant]
     Active Substance: LISINOPRIL
     Dosage: ONGOING
     Route: 065
     Dates: start: 20120808

REACTIONS (5)
  - Wheezing [Unknown]
  - Drug effect decreased [Unknown]
  - Dyspnoea [Unknown]
  - Bronchitis [Unknown]
  - Depression [Unknown]
